FAERS Safety Report 8824341 (Version 1)
Quarter: 2012Q4

REPORT INFORMATION
  Report Type: 
  Country: ZA (occurrence: ZA)
  Receive Date: 20121004
  Receipt Date: 20121004
  Transmission Date: 20130627
  Serious: Yes (Hospitalization)
  Sender: FDA-Public Use
  Company Number: ZA-SANOFI-AVENTIS-2012SA071223

PATIENT
  Age: 53 Year
  Sex: Male

DRUGS (3)
  1. LANTUS SOLOSTAR [Suspect]
     Indication: TYPE 2 DIABETES MELLITUS
     Dosage: Dose:10 unit(s)
     Route: 058
     Dates: start: 201206
  2. SOLOSTAR [Suspect]
     Indication: DEVICE THERAPY
     Dates: start: 201206
  3. GLUCOPHAGE [Concomitant]
     Indication: DIABETES
     Route: 048
     Dates: start: 2011

REACTIONS (3)
  - Tuberculosis [Not Recovered/Not Resolved]
  - Cough [Recovering/Resolving]
  - Chest pain [Recovered/Resolved]
